FAERS Safety Report 15682394 (Version 2)
Quarter: 2019Q1

REPORT INFORMATION
  Report Type: Spontaneous
  Country: US (occurrence: US)
  Receive Date: 20181203
  Receipt Date: 20190117
  Transmission Date: 20190417
  Serious: No
  Sender: FDA-Public Use
  Company Number: US-PFIZER INC-2018493110

PATIENT
  Age: 81 Year
  Sex: Female
  Weight: 77 kg

DRUGS (1)
  1. IBRANCE [Suspect]
     Active Substance: PALBOCICLIB
     Indication: BREAST CANCER METASTATIC
     Dosage: 125 MG, CYCLIC (21 DAYS EACH DAY AND OFF 7 DAYS)
     Route: 048

REACTIONS (3)
  - Dizziness [Unknown]
  - Hypoacusis [Unknown]
  - Nervousness [Unknown]
